FAERS Safety Report 6542089-X (Version None)
Quarter: 2010Q1

REPORT INFORMATION
  Report Type: 
  Country: None (occurrence: None)
  Receive Date: 20100114
  Receipt Date: 20100114
  Transmission Date: 20100710
  Serious: Yes (Other)
  Sender: FDA-Public Use
  Company Number: None

PATIENT
  Age: 48 Year
  Sex: Male
  Weight: 108.8633 kg

DRUGS (1)
  1. CITALOPRAM HYDROBROMIDE [Suspect]
     Indication: DEPRESSION
     Dosage: 30 MG DAILY PO
     Route: 048
     Dates: start: 20091122, end: 20091230

REACTIONS (7)
  - ANGER [None]
  - DIZZINESS [None]
  - INCORRECT DOSE ADMINISTERED [None]
  - PRODUCT SIZE ISSUE [None]
  - PRODUCT SUBSTITUTION ISSUE [None]
  - SYNCOPE [None]
  - TINNITUS [None]
